FAERS Safety Report 16212383 (Version 1)
Quarter: 2019Q2

REPORT INFORMATION
  Report Type: Spontaneous
  Country: US (occurrence: US)
  Receive Date: 20190418
  Receipt Date: 20190418
  Transmission Date: 20190711
  Serious: No
  Sender: FDA-Public Use
  Company Number: US-ORPHAN EUROPE-2066006

PATIENT
  Age: 14 Year
  Sex: Female
  Weight: 27.2 kg

DRUGS (8)
  1. FOLIC ACID. [Concomitant]
     Active Substance: FOLIC ACID
  2. IRON [Concomitant]
     Active Substance: IRON
  3. HYDROXOCOBALAMIN [Concomitant]
     Active Substance: HYDROXOCOBALAMIN
     Route: 030
  4. KEPPRA [Concomitant]
     Active Substance: LEVETIRACETAM
  5. CYSTADANE [Suspect]
     Active Substance: BETAINE
     Indication: VITAMIN B12 DEFICIENCY
     Route: 048
  6. LAMICTAL [Concomitant]
     Active Substance: LAMOTRIGINE
  7. LEVOCARNITINE. [Concomitant]
     Active Substance: LEVOCARNITINE
  8. MULTIVITAMIN [Concomitant]
     Active Substance: VITAMINS

REACTIONS (2)
  - Product supply issue [Unknown]
  - Product dose omission [Recovered/Resolved]
